FAERS Safety Report 8117448-4 (Version None)
Quarter: 2012Q1

REPORT INFORMATION
  Report Type: 
  Country: None (occurrence: None)
  Receive Date: 20120207
  Receipt Date: 20120201
  Transmission Date: 20120608
  Serious: Yes (Hospitalization, Other)
  Sender: FDA-Public Use
  Company Number: IE-BIOGENIDEC-2009BI041449

PATIENT
  Age: 40 Year
  Sex: Female
  Weight: 50 kg

DRUGS (3)
  1. TYSABRI [Suspect]
     Indication: MULTIPLE SCLEROSIS
     Dates: start: 20060801, end: 20091116
  2. ANTIBIOTIC (NOS) [Concomitant]
     Indication: PROPHYLAXIS
  3. ORAL CONTRACEPTION (NOS) [Concomitant]
     Indication: CONTRACEPTION
     Route: 048

REACTIONS (5)
  - MENORRHAGIA [None]
  - PROGRESSIVE MULTIFOCAL LEUKOENCEPHALOPATHY [None]
  - CONVULSION [None]
  - IMMUNE RECONSTITUTION SYNDROME [None]
  - URINARY TRACT INFECTION [None]
